FAERS Safety Report 5326733-0 (Version None)
Quarter: 2007Q2

REPORT INFORMATION
  Report Type: 
  Country: None (occurrence: None)
  Receive Date: 20070516
  Receipt Date: 20070508
  Transmission Date: 20071010
  Serious: Yes (Other)
  Sender: FDA-Public Use
  Company Number: UA-SHR-UA-2007-014752

PATIENT
  Age: 42 Year
  Sex: Female

DRUGS (1)
  1. MIRENA [Suspect]
     Indication: ENDOMETRIAL HYPERPLASIA
     Dosage: 20 A?G, CONT
     Route: 015
     Dates: start: 20041209, end: 20070322

REACTIONS (1)
  - ENDOMETRIAL DYSPLASIA [None]
